FAERS Safety Report 4594076-9 (Version None)
Quarter: 2005Q1

REPORT INFORMATION
  Report Type: 
  Country: None (occurrence: None)
  Receive Date: 20050301
  Receipt Date: 20050218
  Transmission Date: 20050727
  Serious: Yes (Hospitalization)
  Sender: FDA-Public Use
  Company Number: DE-BRISTOL-MYERS SQUIBB COMPANY-12874905

PATIENT
  Age: 46 Year
  Sex: Male

DRUGS (8)
  1. GLUCOPHAGE [Suspect]
     Indication: DIABETES MELLITUS
     Dates: start: 20031015, end: 20031024
  2. HYPNOREX [Interacting]
     Dates: start: 20031027, end: 20031103
  3. CONVULEX [Interacting]
     Dates: start: 20031030, end: 20031103
  4. CIATYL-Z [Interacting]
     Dates: start: 20031031, end: 20031105
  5. NOVONORM [Interacting]
     Indication: DIABETES MELLITUS
     Dates: start: 20031015, end: 20031113
  6. HALDOL [Interacting]
     Dosage: 15MG 15-OCT-2003 TO 28-OCT-2003, 20MG 29-OCT-2003 TO 30-OCT-2003, 10MG 31-OCT-2003 TO 31-OCT-2003
     Dates: start: 20031015, end: 20031031
  7. LEPONEX [Interacting]
     Dates: start: 20031015, end: 20031026
  8. TAVOR [Interacting]
     Dates: start: 20031029, end: 20031113

REACTIONS (5)
  - CONFUSIONAL STATE [None]
  - DELIRIUM [None]
  - DISORIENTATION [None]
  - DRUG INTERACTION [None]
  - RESTLESSNESS [None]
